FAERS Safety Report 5411933-1 (Version None)
Quarter: 2007Q3

REPORT INFORMATION
  Report Type: 
  Country: None (occurrence: None)
  Receive Date: 20070809
  Receipt Date: 20070809
  Transmission Date: 20080115
  Serious: Yes (Hospitalization)
  Sender: FDA-Public Use
  Company Number: None

PATIENT
  Age: 35 Year
  Sex: Female
  Weight: 69.8539 kg

DRUGS (1)
  1. IMMUNE GLOBULIN INTRAVENOUS (HUMAN) [Suspect]
     Indication: IMMUNE SYSTEM DISORDER
     Dosage: 30 ONCE EVERY 28 DAYS IV
     Route: 042
     Dates: start: 20070330, end: 20070719

REACTIONS (3)
  - MENINGITIS ASEPTIC [None]
  - RASH PUSTULAR [None]
  - RENAL DISORDER [None]
